FAERS Safety Report 4784306-2 (Version None)
Quarter: 2005Q3

REPORT INFORMATION
  Report Type: 
  Country: None (occurrence: None)
  Receive Date: 20050930
  Receipt Date: 20050920
  Transmission Date: 20060218
  Serious: Yes (Other)
  Sender: FDA-Public Use
  Company Number: 200516661US

PATIENT
  Sex: Female
  Weight: 102 kg

DRUGS (15)
  1. LANTUS [Suspect]
     Indication: DIABETES MELLITUS NON-INSULIN-DEPENDENT
     Dosage: DOSE UNIT: UNITS
     Route: 058
     Dates: start: 20050401
  2. ACTOS [Concomitant]
     Route: 048
     Dates: start: 20050401
  3. PLAVIX [Concomitant]
     Route: 048
  4. POTASSIUM [Concomitant]
     Dosage: DOSE: NOT PROVIDED
  5. ULTRAM [Concomitant]
     Dosage: DOSE: 1/2 TABLET
     Route: 048
  6. LISINOPRIL [Concomitant]
     Dosage: DOSE: NOT PROVIDED
  7. NEURONTIN [Concomitant]
     Dosage: DOSE: NOT PROVIDED
  8. ANTIDEPRESSANTS [Concomitant]
  9. DETROL [Concomitant]
     Dosage: DOSE: NOT PROVIDED
  10. ATENOLOL [Concomitant]
     Dosage: DOSE: NOT PROVIDED
  11. MULTIVITAMINS W IRON [Concomitant]
     Dosage: DOSE: 1 TABLET
     Route: 048
  12. CORAL CALCIUM [Concomitant]
     Dosage: DOSE: NOT PROVIDED
  13. VITAMIN E [Concomitant]
     Dosage: DOSE: NOT PROVIDED
  14. LORATADINE [Concomitant]
     Dosage: DOSE: NOT PROVIDED
  15. FUROSEMIDE [Concomitant]
     Route: 048

REACTIONS (1)
  - WEIGHT INCREASED [None]
